FAERS Safety Report 21202929 (Version 7)
Quarter: 2023Q1

REPORT INFORMATION
  Report Type: Spontaneous
  Country: US (occurrence: US)
  Receive Date: 20220811
  Receipt Date: 20230308
  Transmission Date: 20230418
  Serious: No
  Sender: FDA-Public Use
  Company Number: US-PFIZER INC-202201050894

PATIENT
  Age: 77 Year
  Sex: Female
  Weight: 63.5 kg

DRUGS (3)
  1. IBRANCE [Suspect]
     Active Substance: PALBOCICLIB
     Indication: Bone cancer
     Dosage: 100 MG, 1X/DAY (IN THE EVENING, TAKES IT AT THE SAME TIMES)
     Dates: start: 2022
  2. TRAMADOL [Concomitant]
     Active Substance: TRAMADOL
     Dosage: UNK
  3. LETROZOLE [Concomitant]
     Active Substance: LETROZOLE
     Dosage: 2.5 MG, 1X/DAY

REACTIONS (8)
  - Headache [Not Recovered/Not Resolved]
  - Pyrexia [Unknown]
  - COVID-19 [Unknown]
  - Abdominal discomfort [Unknown]
  - Computerised tomogram abnormal [Unknown]
  - Abdominal pain upper [Unknown]
  - Alopecia [Unknown]
  - Off label use [Unknown]

NARRATIVE: CASE EVENT DATE: 20220101
